FAERS Safety Report 11038446 (Version 3)
Quarter: 2015Q2

REPORT INFORMATION
  Report Type: Report from Study
  Country: GR (occurrence: GR)
  Receive Date: 20150416
  Receipt Date: 20150505
  Transmission Date: 20150821
  Serious: Yes (Hospitalization)
  Sender: FDA-Public Use
  Company Number: GR-BAYER-2015-121424

PATIENT
  Age: 53 Year
  Sex: Female
  Weight: 60 kg

DRUGS (3)
  1. BARACLUDE [Concomitant]
     Active Substance: ENTECAVIR
     Dosage: DAILY DOSE .5 MG
     Dates: start: 2014
  2. SORAFENIB [Suspect]
     Active Substance: SORAFENIB
     Indication: HEPATOCELLULAR CARCINOMA
     Dosage: DAILY DOSE 400 MG
     Route: 048
     Dates: start: 20150128, end: 20150302
  3. ARIXTRA [Concomitant]
     Active Substance: FONDAPARINUX SODIUM
     Dosage: DAILY DOSE 7.5 MG
     Dates: start: 20150202

REACTIONS (1)
  - Abdominal distension [Recovered/Resolved]

NARRATIVE: CASE EVENT DATE: 20150302
